FAERS Safety Report 4491231-3 (Version None)
Quarter: 2004Q4

REPORT INFORMATION
  Report Type: 
  Country: None (occurrence: None)
  Receive Date: 20041101
  Receipt Date: 20041101
  Transmission Date: 20050328
  Serious: Yes (Life-Threatening)
  Sender: FDA-Public Use
  Company Number: None

PATIENT
  Age: 28 Year
  Sex: Female

DRUGS (10)
  1. ZIPRASIDONE [Suspect]
     Indication: AFFECTIVE DISORDER
     Dosage: 80 MG PO BID
     Route: 048
  2. FLUCONAZOLE [Suspect]
     Indication: CANDIDIASIS
     Dosage: 100 MG PO QOD
     Route: 048
  3. FLUCONAZOLE [Suspect]
     Indication: URINARY TRACT INFECTION
     Dosage: 100 MG PO QOD
     Route: 048
  4. CIPROFLOXACIN [Concomitant]
  5. SYNTHROID [Concomitant]
  6. PREDNISONE [Concomitant]
  7. PREVACID [Concomitant]
  8. KLONOPIN [Concomitant]
  9. KEPPRA [Concomitant]
  10. TRAZODONE HCL [Concomitant]

REACTIONS (3)
  - ELECTROCARDIOGRAM QT CORRECTED INTERVAL PROLONGED [None]
  - HEART RATE DECREASED [None]
  - VENTRICULAR TACHYCARDIA [None]
